FAERS Safety Report 11130839 (Version 1)
Quarter: 2015Q2

REPORT INFORMATION
  Report Type: Spontaneous
  Country: US (occurrence: None)
  Receive Date: 20150521
  Receipt Date: 20150521
  Transmission Date: 20150821
  Serious: No
  Sender: FDA-Public Use
  Company Number: None

PATIENT
  Age: 73 Year
  Sex: Female
  Weight: 39.92 kg

DRUGS (1)
  1. AFINITOR [Suspect]
     Active Substance: EVEROLIMUS
     Indication: CARCINOID TUMOUR
     Route: 048
     Dates: start: 20150215, end: 20150508

REACTIONS (5)
  - Diarrhoea [None]
  - Fatigue [None]
  - Pain in jaw [None]
  - Haemorrhoidal haemorrhage [None]
  - Sinusitis [None]

NARRATIVE: CASE EVENT DATE: 20150503
